FAERS Safety Report 14301234 (Version 4)
Quarter: 2018Q2

REPORT INFORMATION
  Report Type: Spontaneous
  Country: US (occurrence: US)
  Receive Date: 20171219
  Receipt Date: 20180425
  Transmission Date: 20180711
  Serious: Yes (Other)
  Sender: FDA-Public Use
  Company Number: US-UCBSA-2017050821

PATIENT
  Age: 24 Year
  Sex: Female

DRUGS (4)
  1. CIMZIA [Suspect]
     Active Substance: CERTOLIZUMAB PEGOL
     Indication: RHEUMATOID ARTHRITIS
     Dosage: 2X200 MG/ML, NDC 50474071079
     Dates: end: 2017
  2. TRAMADOL. [Concomitant]
     Active Substance: TRAMADOL
     Indication: PRODUCT USED FOR UNKNOWN INDICATION
  3. MICROGESTIN [Concomitant]
     Active Substance: ETHINYL ESTRADIOL\NORETHINDRONE ACETATE
     Indication: PRODUCT USED FOR UNKNOWN INDICATION
  4. TOFACITINIB CITRATE [Suspect]
     Active Substance: TOFACITINIB CITRATE
     Indication: RHEUMATOID ARTHRITIS
     Dosage: 11 MG, ONCE DAILY (QD)
     Route: 048
     Dates: start: 201711, end: 201801

REACTIONS (5)
  - Infectious mononucleosis [Unknown]
  - Infection [Unknown]
  - Nausea [Unknown]
  - Rheumatoid arthritis [Unknown]
  - West Nile viral infection [Unknown]

NARRATIVE: CASE EVENT DATE: 20171030
